FAERS Safety Report 24384679 (Version 7)
Quarter: 2024Q4

REPORT INFORMATION
  Report Type: Report from Study
  Country: CA (occurrence: CA)
  Receive Date: 20241001
  Receipt Date: 20241203
  Transmission Date: 20250114
  Serious: Yes (Other)
  Sender: BAUSCH AND LOMB
  Company Number: CA-BAUSCH-BL-2024-001370

PATIENT
  Age: 58 Year
  Sex: Male
  Weight: 101.7 kg

DRUGS (5)
  1. SILIQ [Suspect]
     Active Substance: BRODALUMAB
     Indication: Psoriasis
     Dosage: 210 MG/ 1.5 ML, WEEKLY (WEEK 0,1 AND 2)
     Route: 058
     Dates: start: 20220601, end: 20220615
  2. SILIQ [Suspect]
     Active Substance: BRODALUMAB
     Dosage: 210 MG/ 1.5 ML, Q2 WEEKS
     Route: 058
     Dates: start: 202206, end: 20240124
  3. SILIQ [Suspect]
     Active Substance: BRODALUMAB
     Dosage: 210 MG/ 1.5 ML, Q2 WEEKS
     Route: 058
     Dates: start: 20240131, end: 20240909
  4. SILIQ [Suspect]
     Active Substance: BRODALUMAB
     Dosage: 210 MG/ 1.5 ML, Q2 WEEKS
     Route: 058
     Dates: start: 20241114
  5. ACITRETIN [Concomitant]
     Active Substance: ACITRETIN
     Indication: Product used for unknown indication
     Dosage: 25 (UNITS UNKNOWN)
     Route: 065
     Dates: start: 20220421

REACTIONS (5)
  - Bladder cancer [Recovering/Resolving]
  - Psoriasis [Not Recovered/Not Resolved]
  - Disease recurrence [Not Recovered/Not Resolved]
  - Fungal infection [Unknown]
  - Influenza like illness [Recovered/Resolved]

NARRATIVE: CASE EVENT DATE: 20240101
